FAERS Safety Report 7878434-2 (Version None)
Quarter: 2011Q4

REPORT INFORMATION
  Report Type: 
  Country: None (occurrence: None)
  Receive Date: 20111012
  Receipt Date: 20110413
  Transmission Date: 20120403
  Serious: Yes (Other)
  Sender: FDA-Public Use
  Company Number: 2011SP016808

PATIENT
  Sex: Female

DRUGS (1)
  1. PROVENTIL-HFA [Suspect]
     Indication: PRODUCT USED FOR UNKNOWN INDICATION
     Dates: start: 20110307

REACTIONS (1)
  - TACHYCARDIA [None]
